FAERS Safety Report 9935400 (Version 1)
Quarter: 2014Q1

REPORT INFORMATION
  Report Type: Spontaneous
  Country: US (occurrence: US)
  Receive Date: 20140228
  Receipt Date: 20140228
  Transmission Date: 20141002
  Serious: No
  Sender: FDA-Public Use
  Company Number: US-PFIZER INC-2014054684

PATIENT
  Age: 43 Year
  Sex: Female
  Weight: 48.07 kg

DRUGS (5)
  1. ZOLOFT [Suspect]
     Indication: DEPRESSION
     Dosage: 100 MG, 1X/DAY
     Route: 048
  2. ZOLOFT [Suspect]
     Indication: ANXIETY
  3. STRIBILD [Suspect]
     Indication: HIV INFECTION
     Dosage: 150/150/200/300MG, 1X/DAY
     Route: 048
  4. ATIVAN [Concomitant]
     Dosage: UNK
  5. XANAX [Concomitant]
     Dosage: UNK

REACTIONS (2)
  - Depression [Unknown]
  - Tremor [Unknown]
